FAERS Safety Report 21995384 (Version 10)
Quarter: 2023Q2

REPORT INFORMATION
  Report Type: Spontaneous
  Country: US (occurrence: US)
  Receive Date: 20230215
  Receipt Date: 20230612
  Transmission Date: 20230721
  Serious: Yes (Other)
  Sender: FDA-Public Use
  Company Number: US-PFIZER INC-202300063572

PATIENT
  Age: 64 Year
  Sex: Male
  Weight: 104.3 kg

DRUGS (3)
  1. GENOTROPIN [Suspect]
     Active Substance: SOMATROPIN
     Indication: Growth hormone deficiency
     Dosage: UNK
  2. GENOTROPIN [Suspect]
     Active Substance: SOMATROPIN
     Dosage: 1 MG, 2X/DAY (BY INJECTION SUBCUTANEOUS)
     Route: 058
     Dates: start: 202301
  3. GENOTROPIN [Suspect]
     Active Substance: SOMATROPIN
     Dosage: 1 MG, DAILY

REACTIONS (15)
  - Brain injury [Unknown]
  - Marfan^s syndrome [Unknown]
  - Cranial nerve paralysis [Unknown]
  - Concussion [Unknown]
  - Product dose omission issue [Unknown]
  - Intentional product misuse [Unknown]
  - Intentional misuse of drug delivery system [Unknown]
  - Depression [Unknown]
  - Suture related complication [Unknown]
  - Nerve injury [Unknown]
  - Device physical property issue [Unknown]
  - Product supply issue [Unknown]
  - Arthralgia [Unknown]
  - Acquired growth hormone resistance [Unknown]
  - Diplopia [Unknown]

NARRATIVE: CASE EVENT DATE: 20230101
